FAERS Safety Report 22297341 (Version 1)
Quarter: 2023Q2

REPORT INFORMATION
  Report Type: Spontaneous
  Country: CN (occurrence: CN)
  Receive Date: 20230509
  Receipt Date: 20230509
  Transmission Date: 20230722
  Serious: Yes (Hospitalization)
  Sender: FDA-Public Use
  Company Number: CN-AMGEN-CHNSP2023075437

PATIENT
  Age: 26 Year
  Sex: Male

DRUGS (6)
  1. BLINCYTO [Suspect]
     Active Substance: BLINATUMOMAB
     Indication: Burkitt^s lymphoma refractory
     Dosage: UNK
     Route: 065
     Dates: start: 2018
  2. BLINCYTO [Suspect]
     Active Substance: BLINATUMOMAB
     Indication: Burkitt^s lymphoma stage II
  3. CYCLOPHOSPHAMIDE\DOXORUBICIN\ETOPOSIDE\PREDNISONE\RITUXIMAB\VINCRISTIN [Concomitant]
     Active Substance: CYCLOPHOSPHAMIDE\DOXORUBICIN\ETOPOSIDE\PREDNISONE\RITUXIMAB\VINCRISTINE
     Indication: Burkitt^s lymphoma refractory
     Dosage: UNK
     Dates: start: 2018
  4. CYCLOPHOSPHAMIDE\DOXORUBICIN\ETOPOSIDE\PREDNISONE\RITUXIMAB\VINCRISTIN [Concomitant]
     Active Substance: CYCLOPHOSPHAMIDE\DOXORUBICIN\ETOPOSIDE\PREDNISONE\RITUXIMAB\VINCRISTINE
     Indication: Burkitt^s lymphoma stage II
  5. Cytarabine;Etoposide;Ifosfamide;Rituximab [Concomitant]
     Indication: Burkitt^s lymphoma refractory
     Dosage: UNK
     Dates: start: 2018
  6. Cytarabine;Etoposide;Ifosfamide;Rituximab [Concomitant]
     Indication: Burkitt^s lymphoma stage II

REACTIONS (4)
  - Burkitt^s lymphoma stage II [Recovered/Resolved]
  - Cytokine release syndrome [Recovered/Resolved]
  - Aspiration bone marrow abnormal [Recovered/Resolved]
  - Off label use [Unknown]

NARRATIVE: CASE EVENT DATE: 20180101
